FAERS Safety Report 5365619-2 (Version None)
Quarter: 2007Q2

REPORT INFORMATION
  Report Type: 
  Country: None (occurrence: None)
  Receive Date: 20070621
  Receipt Date: 20070618
  Transmission Date: 20071010
  Serious: Yes (Other)
  Sender: FDA-Public Use
  Company Number: A0656898A

PATIENT
  Age: 43 Year
  Sex: Male

DRUGS (3)
  1. GOODYS EXTRA STRENGTH HEADACHE POWDER [Suspect]
     Indication: HEADACHE
  2. SYNTHROID [Concomitant]
  3. LEXAPRO [Concomitant]

REACTIONS (12)
  - CHEST DISCOMFORT [None]
  - CIRCULATORY COLLAPSE [None]
  - DYSPNOEA [None]
  - FATIGUE [None]
  - HAEMATEMESIS [None]
  - HAEMATOLOGY TEST ABNORMAL [None]
  - LOSS OF CONSCIOUSNESS [None]
  - MALAISE [None]
  - MOBILITY DECREASED [None]
  - NAUSEA [None]
  - TREMOR [None]
  - ULCER HAEMORRHAGE [None]
